FAERS Safety Report 9347884 (Version 1)
Quarter: 2013Q2

REPORT INFORMATION
  Report Type: Spontaneous
  Country: US (occurrence: US)
  Receive Date: 20130614
  Receipt Date: 20130614
  Transmission Date: 20140414
  Serious: Yes (Hospitalization)
  Sender: FDA-Public Use
  Company Number: US-ASTRAZENECA-2013SE41795

PATIENT
  Age: 65 Year
  Sex: Male

DRUGS (1)
  1. BRILINTA [Suspect]
     Route: 048
     Dates: start: 20130528, end: 2013

REACTIONS (4)
  - Dyspnoea [Unknown]
  - Ejection fraction decreased [Unknown]
  - Orthopnoea [Unknown]
  - Off label use [Recovered/Resolved]
